FAERS Safety Report 21609385 (Version 1)
Quarter: 2022Q4

REPORT INFORMATION
  Report Type: Spontaneous
  Country: CN (occurrence: CN)
  Receive Date: 20221117
  Receipt Date: 20221117
  Transmission Date: 20230113
  Serious: Yes (Hospitalization)
  Sender: FDA-Public Use
  Company Number: None

PATIENT
  Age: 64 Year
  Sex: Female
  Weight: 64 kg

DRUGS (1)
  1. OPTIRAY 350 [Suspect]
     Active Substance: IOVERSOL
     Indication: Computerised tomogram head
     Route: 042
     Dates: start: 20220930, end: 20220930

REACTIONS (3)
  - Dermatitis allergic [Recovered/Resolved]
  - Papule [Unknown]
  - Pruritus [Unknown]

NARRATIVE: CASE EVENT DATE: 20221006
